FAERS Safety Report 23862885 (Version 1)
Quarter: 2024Q2

REPORT INFORMATION
  Report Type: Spontaneous
  Country: GB (occurrence: GB)
  Receive Date: 20240516
  Receipt Date: 20240516
  Transmission Date: 20240716
  Serious: Yes (Hospitalization, Other)
  Sender: FDA-Public Use
  Company Number: None

PATIENT
  Age: 60 Year
  Sex: Female

DRUGS (1)
  1. RITUXIMAB [Suspect]
     Active Substance: RITUXIMAB
     Dosage: 500 MG
     Dates: start: 20240430

REACTIONS (5)
  - Vomiting [Unknown]
  - Chills [Unknown]
  - Diarrhoea [Unknown]
  - Pyrexia [Unknown]
  - Neutropenic sepsis [Recovering/Resolving]

NARRATIVE: CASE EVENT DATE: 20240504
